FAERS Safety Report 8954467 (Version 1)
Quarter: 2012Q4

REPORT INFORMATION
  Report Type: 
  Country: AR (occurrence: AR)
  Receive Date: 20121210
  Receipt Date: 20121210
  Transmission Date: 20130627
  Serious: Yes (Other)
  Sender: FDA-Public Use
  Company Number: PHHY2012AR112886

PATIENT
  Sex: Female

DRUGS (1)
  1. DIOVAN D [Suspect]
     Indication: HYPERTENSION
     Dosage: 2 DF(160/12.5 mg), daily
     Route: 048
     Dates: start: 2010

REACTIONS (2)
  - Paralysis [Unknown]
  - Intervertebral disc protrusion [Unknown]
